FAERS Safety Report 12859975 (Version 1)
Quarter: 2016Q4

REPORT INFORMATION
  Report Type: Spontaneous
  Country: DE (occurrence: DE)
  Receive Date: 20161019
  Receipt Date: 20161019
  Transmission Date: 20170207
  Serious: Yes (Other)
  Sender: FDA-Public Use
  Company Number: DE-GLAXOSMITHKLINE-DE2016GSK153022

PATIENT
  Age: 1 Day
  Sex: Female

DRUGS (7)
  1. FOLIO [Concomitant]
     Active Substance: FOLIC ACID
     Indication: PROPHYLAXIS OF NEURAL TUBE DEFECT
     Dosage: UNK
     Route: 064
     Dates: start: 20150719, end: 20160413
  2. SUMATRIPTAN. [Suspect]
     Active Substance: SUMATRIPTAN
     Indication: MIGRAINE
     Dosage: 1 DF, PRN
     Route: 064
     Dates: start: 20150719, end: 20160413
  3. CEFUROXIM [Concomitant]
     Active Substance: CEFUROXIME
     Dosage: UNK
     Route: 064
     Dates: start: 20160223, end: 20160229
  4. IBUPROFEN. [Concomitant]
     Active Substance: IBUPROFEN
     Indication: MIGRAINE
     Dosage: 4800 MG, WE
     Route: 064
  5. CITALOPRAM [Suspect]
     Active Substance: CITALOPRAM HYDROBROMIDE
     Indication: GENERALISED ANXIETY DISORDER
     Dosage: 40 MG, QD
     Route: 064
     Dates: start: 20150719, end: 20160413
  6. CITALOPRAM [Suspect]
     Active Substance: CITALOPRAM HYDROBROMIDE
     Dosage: 30 MG, QD
  7. LORAZEPAM. [Concomitant]
     Active Substance: LORAZEPAM
     Indication: GENERALISED ANXIETY DISORDER
     Dosage: UNK
     Route: 064

REACTIONS (3)
  - Low birth weight baby [Recovered/Resolved]
  - Small for dates baby [Recovered/Resolved]
  - Foetal exposure during pregnancy [Unknown]

NARRATIVE: CASE EVENT DATE: 20160413
